FAERS Safety Report 9000769 (Version 2)
Quarter: 2013Q3

REPORT INFORMATION
  Report Type: Report from Study
  Country: NL (occurrence: NL)
  Receive Date: 20130107
  Receipt Date: 20130930
  Transmission Date: 20140515
  Serious: Yes (Death, Other)
  Sender: FDA-Public Use
  Company Number: PHHY2013NL001300

PATIENT
  Sex: Female

DRUGS (6)
  1. ZOMETA [Suspect]
     Indication: BREAST CANCER METASTATIC
     Dosage: 4 MG/100 ML ONCE PER 28 DAYS
  2. ZOMETA [Suspect]
     Dosage: 4 MG/100 ML ONCE PER 28 DAYS
     Dates: start: 20111019
  3. ZOMETA [Suspect]
     Dosage: 4 MG/100 ML ONCE PER 28 DAYS
     Dates: start: 20121127
  4. ZOMETA [Suspect]
     Dosage: 4 MG/100 ML ONCE PER 28 DAYS
     Dates: start: 20121221
  5. OPIAT [Concomitant]
     Dosage: UNK UKN, UNK
  6. ANTIEMETICS [Concomitant]
     Dosage: UNK UKN, UNK

REACTIONS (2)
  - Breast cancer metastatic [Fatal]
  - Metastasis [Unknown]
